FAERS Safety Report 9351423 (Version 1)
Quarter: 2013Q2

REPORT INFORMATION
  Report Type: Report from Study
  Country: GB (occurrence: GB)
  Receive Date: 20130617
  Receipt Date: 20130617
  Transmission Date: 20140414
  Serious: Yes (Other)
  Sender: FDA-Public Use
  Company Number: GB-CELGENEUS-167-21880-13060412

PATIENT
  Age: 78 Year
  Sex: Male

DRUGS (29)
  1. REVLIMID [Suspect]
     Indication: PLASMA CELL MYELOMA
     Dosage: 15 MILLIGRAM
     Route: 048
     Dates: start: 20120214
  2. REVLIMID [Suspect]
     Dosage: 10 MILLIGRAM
     Route: 048
     Dates: start: 20120313, end: 20120402
  3. REVLIMID [Suspect]
     Dosage: 15 MILLIGRAM
     Route: 048
     Dates: start: 20120508, end: 20120521
  4. REVLIMID [Suspect]
     Dosage: 10 MILLIGRAM
     Route: 048
     Dates: start: 20120313, end: 20120402
  5. REVLIMID [Suspect]
     Dosage: 15 MILLIGRAM
     Route: 048
     Dates: start: 20130423, end: 20130520
  6. DEXAMETHASONE [Suspect]
     Indication: PLASMA CELL MYELOMA
     Route: 048
     Dates: start: 20120214
  7. DEXAMETHASONE [Suspect]
     Route: 048
     Dates: start: 20120214
  8. DEXAMETHASONE [Suspect]
     Route: 048
     Dates: start: 20130423, end: 20130520
  9. DEXAMETHASONE [Suspect]
     Route: 048
     Dates: start: 20130423, end: 20130520
  10. DEXAMETHASONE [Suspect]
     Route: 048
     Dates: start: 20120508, end: 20120604
  11. DEXAMETHASONE [Suspect]
     Route: 048
     Dates: start: 20120612, end: 20120702
  12. DEXAMETHASONE [Suspect]
     Route: 048
     Dates: start: 20120717, end: 20120807
  13. DEXAMETHASONE [Suspect]
     Route: 048
     Dates: start: 20120808, end: 20120903
  14. DEXAMETHASONE [Suspect]
     Route: 048
     Dates: start: 20120904, end: 20121001
  15. THALIDOMIDE [Suspect]
     Indication: PLASMA CELL MYELOMA
     Route: 048
     Dates: start: 201007
  16. CLOPIDOGREL [Concomitant]
     Indication: PROPHYLAXIS
     Dosage: 75 MILLIGRAM
     Route: 048
  17. CLOPIDOGREL [Concomitant]
     Indication: MYOCARDIAL ISCHAEMIA
  18. RANITIDINE [Concomitant]
     Indication: PRODUCT USED FOR UNKNOWN INDICATION
     Dosage: 300 MILLIGRAM
     Route: 048
  19. PENICILLIN [Concomitant]
     Indication: PRODUCT USED FOR UNKNOWN INDICATION
     Dosage: 500 MILLIGRAM
     Route: 048
  20. ACICLOVIR [Concomitant]
     Indication: ANTIVIRAL PROPHYLAXIS
     Dosage: 600 MILLIGRAM
     Route: 048
  21. METOCLOPRAMIDE [Concomitant]
     Indication: NAUSEA
     Dosage: 600 MILLIGRAM
     Route: 048
  22. METOCLOPRAMIDE [Concomitant]
     Indication: VOMITING
  23. CODEINE [Concomitant]
     Indication: ANALGESIC THERAPY
     Route: 048
  24. FLUDROCORTISONE [Concomitant]
     Indication: ADRENAL INSUFFICIENCY
     Dosage: 50 MILLIGRAM
     Route: 048
  25. TEMAZEPAM [Concomitant]
     Indication: PRODUCT USED FOR UNKNOWN INDICATION
     Route: 048
  26. GTN [Concomitant]
     Indication: CHEST PAIN
     Route: 065
  27. TINZAPARIN [Concomitant]
     Indication: PROPHYLAXIS
     Dosage: 75 MILLIGRAM
     Route: 065
  28. BISOPROLOL [Concomitant]
     Indication: PROPHYLAXIS
     Dosage: 2.5 MILLIGRAM
     Route: 048
  29. HEPARIN LMW [Concomitant]
     Indication: MYOCARDIAL ISCHAEMIA
     Route: 065

REACTIONS (1)
  - Basal cell carcinoma [Recovered/Resolved]
